FAERS Safety Report 8535950-8 (Version None)
Quarter: 2012Q3

REPORT INFORMATION
  Report Type: 
  Country: None (occurrence: None)
  Receive Date: 20120725
  Receipt Date: 20120718
  Transmission Date: 20120928
  Serious: Yes (Hospitalization)
  Sender: FDA-Public Use
  Company Number: PHHY2012BR062143

PATIENT
  Sex: Male
  Weight: 54 kg

DRUGS (5)
  1. AMINOPHYLLIN [Concomitant]
     Indication: EMPHYSEMA
     Dosage: 100 MG, BID
     Route: 048
  2. HIDROMED [Concomitant]
     Dosage: 25 MG, QD
     Route: 048
     Dates: start: 20120629
  3. PRESSIONA [Concomitant]
     Dosage: 100 MG, (2TAB DAILY)
     Route: 048
  4. FORMOTEROL FUMARATE [Suspect]
     Dosage: 1 DF, BID (1 INHALATION IN MORNING AND 1 INHALATION AT NIGHT)
  5. ENALAPRIL MALEATE [Concomitant]
     Indication: INFARCTION
     Dosage: 10 MG, BID
     Route: 048
     Dates: start: 20120629

REACTIONS (4)
  - INFARCTION [None]
  - PNEUMONIA [None]
  - DYSPNOEA [None]
  - HYPERTENSION [None]
